FAERS Safety Report 6934022 (Version 1)
Quarter: 2020Q3

REPORT INFORMATION
  Report Type: Report from Study
  Country: JP (occurrence: JP)
  Receive Date: 20090311
  Receipt Date: 20090311
  Transmission Date: 20201105
  Serious: Yes (Hospitalization)
  Sender: FDA-Public Use
  Company Number: JP-ROCHE-617585

PATIENT
  Age: 78 Year
  Sex: Male
  Weight: 50 kg

DRUGS (11)
  1. IBANDRONIC ACID. [Suspect]
     Active Substance: IBANDRONIC ACID
     Indication: OSTEOPOROSIS
     Dosage: ROUTE: INTRAVENOUS (NOT OTHERWISE SPECIFIED)
     Route: 042
     Dates: start: 20070427
  2. CERNILTON [Concomitant]
     Route: 048
     Dates: start: 20061105
  3. FLAVOXATE HYDROCHLORIDE. [Concomitant]
     Active Substance: FLAVOXATE HYDROCHLORIDE
     Dosage: DRUG: RUADAN
     Route: 048
     Dates: start: 20081215
  4. PERSANTINE [Concomitant]
     Active Substance: DIPYRIDAMOLE
     Route: 048
     Dates: start: 20020810
  5. AMYLASE [Concomitant]
     Active Substance: AMYLASE
     Dosage: DRUG: SM(TAKA?DIASTASE_NATURAL AGENTS COMBINED DRUG)
     Route: 048
     Dates: start: 20030925
  6. GLUTAMINE\SODIUM GUALENATE [Concomitant]
     Active Substance: GLUTAMINE\SODIUM GUALENATE
     Route: 048
     Dates: start: 20030925
  7. HERBESSER [Concomitant]
     Active Substance: DILTIAZEM HYDROCHLORIDE
     Route: 048
     Dates: start: 20020810
  8. RISEDRONIC ACID [Suspect]
     Active Substance: RISEDRONIC ACID
     Indication: OSTEOPOROSIS
     Dosage: DRUG: ACTONEL (SODIUM RISEDRONATE HYDRATE) OR PLACEBO
     Route: 048
     Dates: start: 20070425
  9. COBALAMINE [Concomitant]
     Dosage: DRUG: DOCELAN (HYDROXOCOBALAMINE ACETATE)
     Route: 048
     Dates: start: 20020810
  10. NIFEDIPINE. [Concomitant]
     Active Substance: NIFEDIPINE
     Dosage: DRUG: SEPAMIT?R
     Route: 048
     Dates: start: 20020810
  11. EURAX [Concomitant]
     Active Substance: CROTAMITON
     Route: 062
     Dates: start: 20061209

REACTIONS (1)
  - Hepatic enzyme increased [Not Recovered/Not Resolved]

NARRATIVE: CASE EVENT DATE: 20090127
